FAERS Safety Report 21985091 (Version 1)
Quarter: 2023Q1

REPORT INFORMATION
  Report Type: Spontaneous
  Country: US (occurrence: None)
  Receive Date: 20230210
  Receipt Date: 20230210
  Transmission Date: 20230417
  Serious: Yes (Other)
  Sender: FDA-Public Use
  Company Number: None

PATIENT
  Age: 33 Year
  Sex: Male
  Weight: 54.45 kg

DRUGS (5)
  1. SUBLOCADE [Suspect]
     Active Substance: BUPRENORPHINE
     Indication: Alcoholism
     Dosage: OTHER FREQUENCY : MONTHY;?
     Route: 058
     Dates: start: 20220728, end: 20221031
  2. SUBLOCADE [Concomitant]
     Active Substance: BUPRENORPHINE
     Dates: start: 20220728
  3. SUBLOCADE [Concomitant]
     Active Substance: BUPRENORPHINE
     Dates: start: 20220906
  4. Subocade [Concomitant]
     Dates: start: 20221006
  5. SUBLOCADE [Concomitant]
     Active Substance: BUPRENORPHINE
     Dates: start: 20221031

REACTIONS (1)
  - Injection site mass [None]

NARRATIVE: CASE EVENT DATE: 20230210
